FAERS Safety Report 6557809-8 (Version None)
Quarter: 2010Q1

REPORT INFORMATION
  Report Type: 
  Country: None (occurrence: None)
  Receive Date: 20100128
  Receipt Date: 20100128
  Transmission Date: 20100710
  Serious: Yes (Other)
  Sender: FDA-Public Use
  Company Number: None

PATIENT
  Sex: Male

DRUGS (1)
  1. WELLBUTRIN [Suspect]
     Indication: MAJOR DEPRESSION
     Dosage: 300 MG QD PO
     Route: 048

REACTIONS (3)
  - DYSPHORIA [None]
  - FEELING ABNORMAL [None]
  - GASTROINTESTINAL DISORDER [None]
